FAERS Safety Report 9440601 (Version 3)
Quarter: 2013Q4

REPORT INFORMATION
  Report Type: Spontaneous
  Country: US (occurrence: US)
  Receive Date: 20130805
  Receipt Date: 20131009
  Transmission Date: 20140711
  Serious: Yes (Disabling, Other)
  Sender: FDA-Public Use
  Company Number: US-PFIZER INC-2012032079

PATIENT
  Age: 58 Year
  Sex: Female
  Weight: 72.56 kg

DRUGS (12)
  1. CELEBREX [Suspect]
     Indication: PAIN
     Dosage: 200 MG, 1X/DAY
  2. CELEBREX [Suspect]
     Indication: PAIN
     Dosage: 200 MG, 1X/DAY
     Route: 048
     Dates: start: 2013, end: 2013
  3. VENLAFAXINE HYDROCHLORIDE [Concomitant]
     Indication: ANXIETY
     Dosage: 75 MG, 1X/DAY
  4. ATENOLOL/CHLORTHALIDONE [Concomitant]
     Indication: HYPERTENSION
     Dosage: ATENOLOL 50/CHLORTHALIDONE25 MG, 1X/DAY
  5. LEVOXYL [Concomitant]
     Indication: THYROID DISORDER
     Dosage: 100 UG, 1X/DAY
  6. NEXIUM [Concomitant]
     Dosage: UNK, 1X/DAY
  7. ALLOPURINOL [Concomitant]
     Dosage: 100 MG, 1X/DAY
  8. OXYCODONE [Concomitant]
     Dosage: UNK, 1X/DAY
  9. METHOCARBAMOL [Concomitant]
     Dosage: 750 MG, 1X/DAY
  10. AMITRIPTYLINE [Concomitant]
     Dosage: UNK, 1X/DAY
  11. CLONAZEPAM [Concomitant]
     Dosage: UNK, 1X/DAY
  12. SIMVASTATIN [Concomitant]
     Dosage: UNK, 1X/DAY

REACTIONS (6)
  - Intervertebral disc disorder [Recovered/Resolved]
  - Urinary tract infection [Recovered/Resolved]
  - Lymphadenopathy [Unknown]
  - Headache [Unknown]
  - Malaise [Not Recovered/Not Resolved]
  - Irritability [Not Recovered/Not Resolved]
